FAERS Safety Report 4294492-9 (Version None)
Quarter: 2004Q1

REPORT INFORMATION
  Report Type: 
  Country: None (occurrence: None)
  Receive Date: 20040211
  Receipt Date: 20040130
  Transmission Date: 20041129
  Serious: Yes (Hospitalization)
  Sender: FDA-Public Use
  Company Number: US-JNJFOC-20040200518

PATIENT
  Age: 31 Year
  Sex: Male
  Weight: 71 kg

DRUGS (3)
  1. REMICADE [Suspect]
     Indication: CROHN'S DISEASE
     Dosage: SEE IMAGE
     Route: 042
     Dates: start: 20030703
  2. MESALAMINE (MESALAZINE) [Concomitant]
  3. PREDNISONE [Concomitant]

REACTIONS (4)
  - ANOREXIA [None]
  - CROHN'S DISEASE [None]
  - RECTAL HAEMORRHAGE [None]
  - WEIGHT DECREASED [None]
